FAERS Safety Report 13170840 (Version 2)
Quarter: 2017Q3

REPORT INFORMATION
  Report Type: Spontaneous
  Country: US (occurrence: US)
  Receive Date: 20170201
  Receipt Date: 20170704
  Transmission Date: 20171127
  Serious: Yes (Hospitalization)
  Sender: FDA-Public Use
  Company Number: US-TEVA-730919USA

PATIENT
  Age: 70 Year
  Sex: Female
  Weight: 62 kg

DRUGS (2)
  1. PF-06438179;INFLIXIMAB (CODE NOT BROKEN) [Concomitant]
     Indication: RHEUMATOID ARTHRITIS
     Dosage: 5.7232 MILLIGRAM DAILY;
     Route: 042
     Dates: start: 20150216
  2. PREDNISONE. [Suspect]
     Active Substance: PREDNISONE
     Indication: RHEUMATOID ARTHRITIS
     Dosage: EVERY OTHER DAY
     Route: 048
     Dates: start: 20150701

REACTIONS (3)
  - Spinal compression fracture [Recovered/Resolved]
  - Condition aggravated [Not Recovered/Not Resolved]
  - Back pain [Not Recovered/Not Resolved]

NARRATIVE: CASE EVENT DATE: 20160118
